FAERS Safety Report 4552914-X (Version None)
Quarter: 2005Q1

REPORT INFORMATION
  Report Type: 
  Country: None (occurrence: None)
  Receive Date: 20050114
  Receipt Date: 20050107
  Transmission Date: 20050727
  Serious: Yes (Death)
  Sender: FDA-Public Use
  Company Number: GB-JNJFOC-20050101858

PATIENT
  Age: 92 Year
  Sex: Female
  Weight: 40 kg

DRUGS (4)
  1. IBUPROFEN [Suspect]
     Indication: CHEST PAIN
     Route: 049
  2. ACETAMINOPHEN [Concomitant]
     Route: 049
  3. LACTULOSE [Concomitant]
     Route: 049
  4. SENNA [Concomitant]
     Dosage: 2 TABLETS, ORAL
     Route: 049

REACTIONS (1)
  - PANCREATITIS [None]
